FAERS Safety Report 4844984-6 (Version None)
Quarter: 2005Q4

REPORT INFORMATION
  Report Type: 
  Country: None (occurrence: None)
  Receive Date: 20051205
  Receipt Date: 20051005
  Transmission Date: 20060501
  Serious: Yes (Hospitalization, Other)
  Sender: FDA-Public Use
  Company Number: US-MERCK-0510USA04594

PATIENT
  Age: 69 Year
  Sex: Female
  Weight: 73 kg

DRUGS (2)
  1. VIOXX [Suspect]
     Indication: OSTEOARTHRITIS
     Route: 048
     Dates: start: 20010101, end: 20030101
  2. TYLENOL [Concomitant]
     Route: 065

REACTIONS (4)
  - ARTHROPATHY [None]
  - BLADDER DISORDER [None]
  - CONDUCTION DISORDER [None]
  - OPTIC NERVE INFARCTION [None]
